FAERS Safety Report 6006968-4 (Version None)
Quarter: 2008Q4

REPORT INFORMATION
  Report Type: 
  Country: None (occurrence: None)
  Receive Date: 20081217
  Receipt Date: 20071205
  Transmission Date: 20090506
  Serious: No
  Sender: FDA-Public Use
  Company Number: US-ASTRAZENECA-2007UW27767

PATIENT
  Age: 72 Year
  Sex: Female
  Weight: 79.4 kg

DRUGS (4)
  1. CRESTOR [Suspect]
     Indication: BLOOD CHOLESTEROL INCREASED
     Route: 048
  2. CRESTOR [Suspect]
     Route: 048
     Dates: start: 20070801
  3. FOSAMAX [Concomitant]
  4. METFORMIN HCL [Concomitant]

REACTIONS (3)
  - CONSTIPATION [None]
  - MYALGIA [None]
  - PAIN IN EXTREMITY [None]
